FAERS Safety Report 18267787 (Version 1)
Quarter: 2020Q3

REPORT INFORMATION
  Report Type: Spontaneous
  Country: CN (occurrence: CN)
  Receive Date: 20200915
  Receipt Date: 20200915
  Transmission Date: 20201103
  Serious: Yes (Other)
  Sender: FDA-Public Use
  Company Number: CN-PFIZER INC-2020353456

PATIENT
  Age: 51 Year
  Sex: Male

DRUGS (3)
  1. SOLU?MEDROL [Suspect]
     Active Substance: METHYLPREDNISOLONE SODIUM SUCCINATE
     Indication: VASCULITIS
     Dosage: 80 MG, 1X/DAY
     Route: 041
     Dates: start: 20200819, end: 20200821
  2. SOLU?MEDROL [Suspect]
     Active Substance: METHYLPREDNISOLONE SODIUM SUCCINATE
     Dosage: 40 MG, 1X/DAY
     Route: 041
     Dates: start: 20200822, end: 20200902
  3. SODIUM CHLORIDE. [Concomitant]
     Active Substance: SODIUM CHLORIDE
     Indication: VEHICLE SOLUTION USE
     Dosage: 100 ML, 1X/DAY
     Route: 041
     Dates: start: 20200819, end: 20200902

REACTIONS (3)
  - Vision blurred [Recovering/Resolving]
  - Dry mouth [Recovering/Resolving]
  - Xerophthalmia [Recovering/Resolving]

NARRATIVE: CASE EVENT DATE: 20200824
